FAERS Safety Report 22083901 (Version 2)
Quarter: 2023Q1

REPORT INFORMATION
  Report Type: Spontaneous
  Country: BR (occurrence: BR)
  Receive Date: 20230310
  Receipt Date: 20230317
  Transmission Date: 20230417
  Serious: Yes (Other)
  Sender: FDA-Public Use
  Company Number: BR-SA-SAC20230309000599

PATIENT
  Age: 34 Year
  Sex: Male

DRUGS (1)
  1. LEMTRADA [Suspect]
     Active Substance: ALEMTUZUMAB
     Dosage: UNK
     Dates: start: 20230228

REACTIONS (13)
  - Paralysis [Unknown]
  - Multiple sclerosis pseudo relapse [Unknown]
  - Diplopia [Unknown]
  - Capillary nail refill test abnormal [Unknown]
  - Motor dysfunction [Unknown]
  - Dysarthria [Unknown]
  - Nervous system disorder [Unknown]
  - Condition aggravated [Unknown]
  - Pallor [Unknown]
  - Confusional state [Unknown]
  - Tremor [Unknown]
  - Body temperature increased [Unknown]
  - Rash [Unknown]

NARRATIVE: CASE EVENT DATE: 20230101
